FAERS Safety Report 19288970 (Version 4)
Quarter: 2023Q1

REPORT INFORMATION
  Report Type: Report from Study
  Country: CA (occurrence: CA)
  Receive Date: 20210521
  Receipt Date: 20230111
  Transmission Date: 20230418
  Serious: Yes (Hospitalization, Other)
  Sender: FDA-Public Use
  Company Number: PHHY2014CA070049

PATIENT
  Age: 42 Year
  Sex: Female

DRUGS (8)
  1. XOLAIR [Suspect]
     Active Substance: OMALIZUMAB
     Indication: Asthma
     Dosage: 300 MG, EVERY 4 WEEKS
     Route: 058
     Dates: start: 20140604
  2. XOLAIR [Suspect]
     Active Substance: OMALIZUMAB
     Dosage: UNK
     Route: 058
     Dates: start: 20170407
  3. XOLAIR [Suspect]
     Active Substance: OMALIZUMAB
     Dosage: UNK
     Route: 058
     Dates: start: 20171124
  4. XOLAIR [Suspect]
     Active Substance: OMALIZUMAB
     Dosage: 300 MG, EVERY 4 WEEKS
     Route: 058
     Dates: start: 20180515
  5. XOLAIR [Suspect]
     Active Substance: OMALIZUMAB
     Dosage: 300 MG, EVERY 4 WEEKS
     Route: 058
     Dates: start: 20190122
  6. XOLAIR [Suspect]
     Active Substance: OMALIZUMAB
     Dosage: 300 MG, EVERY 4 WEEKS
     Route: 058
  7. XOLAIR [Suspect]
     Active Substance: OMALIZUMAB
     Dosage: 300 MG, EVERY 4 WEEKS
     Route: 058
  8. AZITHROMYCIN [Suspect]
     Active Substance: AZITHROMYCIN
     Indication: Product used for unknown indication
     Dosage: UNK
     Route: 065

REACTIONS (24)
  - Gastric ulcer [Unknown]
  - Hepatic steatosis [Unknown]
  - Abdominal pain [Unknown]
  - Post-traumatic neck syndrome [Unknown]
  - Road traffic accident [Unknown]
  - Injury [Unknown]
  - Bone contusion [Unknown]
  - Concussion [Unknown]
  - Immunodeficiency [Unknown]
  - Anxiety [Unknown]
  - Herpes zoster [Unknown]
  - Urticaria [Unknown]
  - Swelling [Unknown]
  - Erythema [Unknown]
  - Bronchitis [Unknown]
  - Illness [Unknown]
  - Sensitivity to weather change [Unknown]
  - Oropharyngeal pain [Unknown]
  - Nasopharyngitis [Recovering/Resolving]
  - Weight decreased [Unknown]
  - Heart rate increased [Unknown]
  - Headache [Unknown]
  - Pruritus [Unknown]
  - Drug hypersensitivity [Unknown]

NARRATIVE: CASE EVENT DATE: 20140101
